FAERS Safety Report 5015467-8 (Version None)
Quarter: 2006Q2

REPORT INFORMATION
  Report Type: 
  Country: None (occurrence: None)
  Receive Date: 20060601
  Receipt Date: 20060427
  Transmission Date: 20061013
  Serious: Yes (Death, Hospitalization)
  Sender: FDA-Public Use
  Company Number: PHEH2006US05558

PATIENT
  Age: 81 Year
  Sex: Male

DRUGS (4)
  1. EXJADE [Suspect]
     Indication: BLOOD IRON INCREASED
     Dosage: 1500 MG, QD
     Route: 048
     Dates: start: 20060306, end: 20060412
  2. REVLIMID [Concomitant]
     Indication: MYELODYSPLASTIC SYNDROME
     Dosage: 10 MG, QD
     Dates: start: 20060215, end: 20060318
  3. CYCLOSPORINE [Concomitant]
     Indication: MYELODYSPLASTIC SYNDROME
     Dosage: 100 MG, BID
     Dates: start: 20060329, end: 20060412
  4. PROCRIT [Concomitant]
     Indication: MYELODYSPLASTIC SYNDROME
     Dosage: 40000 UNITS, QW
     Dates: start: 20050505, end: 20060412

REACTIONS (10)
  - BIOPSY LUNG [None]
  - CHEST TUBE INSERTION [None]
  - COUGH [None]
  - CRYPTOGENIC ORGANIZING PNEUMONIA [None]
  - DYSPNOEA [None]
  - LUNG DISORDER [None]
  - LUNG INFILTRATION [None]
  - PNEUMONIA [None]
  - PNEUMOTHORAX [None]
  - RESPIRATORY FAILURE [None]
